FAERS Safety Report 7033641-6 (Version None)
Quarter: 2010Q4

REPORT INFORMATION
  Report Type: 
  Country: None (occurrence: None)
  Receive Date: 20101005
  Receipt Date: 20100927
  Transmission Date: 20110411
  Serious: Yes (Hospitalization)
  Sender: FDA-Public Use
  Company Number: TPA2010A05164

PATIENT
  Age: 72 Year
  Sex: Male
  Weight: 136.0791 kg

DRUGS (9)
  1. ACTOS [Suspect]
     Indication: DIABETES MELLITUS
     Dosage: 45 MG, 1 IN 1 D, PER ORAL 45 MG, 1 IN 1 D, PER ORAL
     Route: 048
     Dates: start: 20000101, end: 20100901
  2. ACTOS [Suspect]
     Indication: DIABETES MELLITUS
     Dosage: 45 MG, 1 IN 1 D, PER ORAL 45 MG, 1 IN 1 D, PER ORAL
     Route: 048
     Dates: start: 20100901
  3. COUMADIN [Concomitant]
  4. GLYBURIDE [Concomitant]
  5. LIPITOR [Concomitant]
  6. METFORMIN HCL [Concomitant]
  7. RAMIPRIL [Concomitant]
  8. ZETIA [Concomitant]
  9. METOPROLOL SUCCINATE [Concomitant]

REACTIONS (10)
  - ABDOMINAL PAIN UPPER [None]
  - ABDOMINAL TENDERNESS [None]
  - DIZZINESS [None]
  - FATIGUE [None]
  - HEADACHE [None]
  - MITRAL VALVE REPAIR [None]
  - OEDEMA PERIPHERAL [None]
  - TOOTH DISORDER [None]
  - VASCULAR GRAFT [None]
  - WEIGHT INCREASED [None]
